FAERS Safety Report 13359288 (Version 1)
Quarter: 2017Q1

REPORT INFORMATION
  Report Type: Spontaneous
  Country: US (occurrence: US)
  Receive Date: 20170321
  Receipt Date: 20170321
  Transmission Date: 20170429
  Serious: Yes (Hospitalization)
  Sender: FDA-Public Use
  Company Number: None

PATIENT
  Age: 40 Year
  Sex: Female
  Weight: 136.9 kg

DRUGS (3)
  1. ETOPOSIDE (VP-16) [Suspect]
     Active Substance: ETOPOSIDE
     Dates: end: 20150703
  2. CYTARABINE. [Suspect]
     Active Substance: CYTARABINE
     Dates: end: 20150703
  3. METHOTREXATE. [Suspect]
     Active Substance: METHOTREXATE
     Dates: end: 20150629

REACTIONS (8)
  - Product contamination [None]
  - Decreased appetite [None]
  - Neutrophil count decreased [None]
  - Nausea [None]
  - Device related infection [None]
  - Injection site pain [None]
  - Pyrexia [None]
  - Micrococcus test positive [None]

NARRATIVE: CASE EVENT DATE: 20150717
